FAERS Safety Report 18019474 (Version 2)
Quarter: 2020Q4

REPORT INFORMATION
  Report Type: Spontaneous
  Country: US (occurrence: US)
  Receive Date: 20200714
  Receipt Date: 20201204
  Transmission Date: 20210113
  Serious: Yes (Other)
  Sender: FDA-Public Use
  Company Number: US-GILEAD-2020-0481511

PATIENT

DRUGS (1)
  1. TRUVADA [Suspect]
     Active Substance: EMTRICITABINE\TENOFOVIR DISOPROXIL FUMARATE
     Indication: PROPHYLAXIS AGAINST HIV INFECTION
     Dosage: UNK
     Route: 048
     Dates: start: 2001

REACTIONS (9)
  - Nephropathy [Unknown]
  - Skeletal injury [Unknown]
  - Pain [Unknown]
  - Emotional distress [Unknown]
  - Bone disorder [Unknown]
  - Renal injury [Unknown]
  - Anxiety [Unknown]
  - Multiple fractures [Unknown]
  - Anhedonia [Unknown]
